FAERS Safety Report 6782791-8 (Version None)
Quarter: 2010Q2

REPORT INFORMATION
  Report Type: 
  Country: None (occurrence: None)
  Receive Date: 20100621
  Receipt Date: 20100611
  Transmission Date: 20101027
  Serious: Yes (Hospitalization)
  Sender: FDA-Public Use
  Company Number: US-ABBOTT-10P-163-0651787-00

PATIENT
  Sex: Female
  Weight: 124.85 kg

DRUGS (5)
  1. SYNTHROID [Suspect]
     Indication: AUTOIMMUNE THYROIDITIS
     Dates: start: 19700101
  2. ATENOLOL [Concomitant]
     Indication: HYPERTENSION
  3. CARDIZEM [Concomitant]
     Indication: ATRIAL FIBRILLATION
  4. COUMADIN [Concomitant]
     Indication: ATRIAL FIBRILLATION
  5. TYLENOL [Concomitant]
     Indication: ARTHRALGIA

REACTIONS (8)
  - ASTHENIA [None]
  - BLOOD THYROID STIMULATING HORMONE INCREASED [None]
  - CONSTIPATION [None]
  - DEPRESSION [None]
  - HYPOTHYROIDISM [None]
  - MEMORY IMPAIRMENT [None]
  - MYALGIA [None]
  - OSTEOARTHRITIS [None]
